FAERS Safety Report 6345432-X (Version None)
Quarter: 2009Q3

REPORT INFORMATION
  Report Type: 
  Country: None (occurrence: None)
  Receive Date: 20090909
  Receipt Date: 20090710
  Transmission Date: 20100115
  Serious: No
  Sender: FDA-Public Use
  Company Number: US-BAYER-200929294NA

PATIENT

DRUGS (1)
  1. MAGNEVIST [Suspect]
     Indication: DRUG USE FOR UNKNOWN INDICATION
     Dosage: AS USED: 8 ML
     Dates: start: 20090709, end: 20090709

REACTIONS (4)
  - DRY THROAT [None]
  - NASAL DRYNESS [None]
  - NAUSEA [None]
  - PARAESTHESIA ORAL [None]
